FAERS Safety Report 6110733-7 (Version None)
Quarter: 2009Q1

REPORT INFORMATION
  Report Type: 
  Country: None (occurrence: None)
  Receive Date: 20090309
  Receipt Date: 20090304
  Transmission Date: 20090719
  Serious: Yes (Hospitalization)
  Sender: FDA-Public Use
  Company Number: ADR-770-019

PATIENT
  Age: 85 Year
  Sex: Female

DRUGS (1)
  1. GLIMEPIRIDE                     INVAGEN PHARMACEUTICALS [Suspect]
     Indication: DIABETES MELLITUS
     Dosage: 1 MG/QD/ORALLY
     Route: 048
     Dates: start: 20090209, end: 20090225

REACTIONS (2)
  - BLOOD GLUCOSE DECREASED [None]
  - UNRESPONSIVE TO STIMULI [None]
